FAERS Safety Report 10170328 (Version 4)
Quarter: 2015Q1

REPORT INFORMATION
  Report Type: Spontaneous
  Country: SE (occurrence: SE)
  Receive Date: 20140513
  Receipt Date: 20140513
  Transmission Date: 20150720
  Serious: Yes (Hospitalization)
  Sender: FDA-Public Use
  Company Number: SE-MYLANLABS-2014S1010648

PATIENT
  Age: 68 Year
  Sex: Male

DRUGS (8)
  1. BACLOFEN. [Suspect]
     Active Substance: BACLOFEN
     Indication: SEIZURE
     Dates: start: 2012
  2. LYRICA [Concomitant]
     Active Substance: PREGABALIN
     Indication: NEURALGIA
  3. ATORVASTATIN [Suspect]
     Active Substance: ATORVASTATIN
     Indication: BLOOD CHOLESTEROL INCREASED
     Dosage: 10MG
     Dates: start: 20140211, end: 20140308
  4. METFORMIN [Concomitant]
     Active Substance: METFORMIN HYDROCHLORIDE
     Indication: HYPERGLYCAEMIA
  5. ENAPRIL [Concomitant]
     Active Substance: ENALAPRIL
     Indication: HYPERTENSION
  6. BACLOFEN. [Suspect]
     Active Substance: BACLOFEN
     Indication: SEIZURE
     Dosage: BACLOFEN BLUEFISH
     Dates: start: 20140211
  7. ORUDIS [Concomitant]
     Active Substance: KETOPROFEN
     Indication: ARTHROPATHY
  8. IBUMETIN [Concomitant]
     Active Substance: IBUPROFEN
     Indication: INFLAMMATION

REACTIONS (5)
  - Muscle tightness [Not Recovered/Not Resolved]
  - Muscle rigidity [Unknown]
  - Muscle spasms [Not Recovered/Not Resolved]
  - Coordination abnormal [Unknown]
  - Musculoskeletal pain [Unknown]

NARRATIVE: CASE EVENT DATE: 201311
